FAERS Safety Report 15154451 (Version 1)
Quarter: 2018Q3

REPORT INFORMATION
  Report Type: Spontaneous
  Country: US (occurrence: US)
  Receive Date: 20180619
  Receipt Date: 20180619
  Transmission Date: 20181010
  Serious: No
  Sender: FDA-Public Use
  Company Number: None

PATIENT

DRUGS (3)
  1. MARQIBO [Suspect]
     Active Substance: VINCRISTINE SULFATE
  2. RITUXIMAB. [Suspect]
     Active Substance: RITUXIMAB
  3. BENDAMUSTINE [Suspect]
     Active Substance: BENDAMUSTINE

REACTIONS (2)
  - Pyrexia [None]
  - Constipation [None]
